FAERS Safety Report 25813146 (Version 1)
Quarter: 2025Q3

REPORT INFORMATION
  Report Type: Spontaneous
  Country: GB (occurrence: GB)
  Receive Date: 20250917
  Receipt Date: 20250917
  Transmission Date: 20251021
  Serious: Yes (Hospitalization, Other)
  Sender: ELI LILLY AND COMPANY
  Company Number: None

PATIENT
  Age: 70 Year
  Sex: Female

DRUGS (6)
  1. TIRZEPATIDE [Suspect]
     Active Substance: TIRZEPATIDE
     Indication: Diabetes mellitus
     Dosage: 5 MG, WEEKLY (1/W)
     Route: 065
  2. TIRZEPATIDE [Suspect]
     Active Substance: TIRZEPATIDE
     Indication: Diabetes mellitus
     Dosage: 5 MG, WEEKLY (1/W)
     Route: 065
  3. LISINOPRIL [Concomitant]
     Active Substance: LISINOPRIL
     Indication: Hypertension
  4. ETORICOXIB [Concomitant]
     Active Substance: ETORICOXIB
     Indication: Arthritis
  5. PREGABALIN [Concomitant]
     Active Substance: PREGABALIN
     Indication: Arthritis
  6. MORPHINE [Concomitant]
     Active Substance: MORPHINE
     Indication: Procedural pain
     Dates: start: 20250902, end: 20250903

REACTIONS (2)
  - Pneumonia aspiration [Not Recovered/Not Resolved]
  - Ileus paralytic [Recovering/Resolving]

NARRATIVE: CASE EVENT DATE: 20250903
